FAERS Safety Report 19282099 (Version 1)
Quarter: 2021Q2

REPORT INFORMATION
  Report Type: Spontaneous
  Country: US (occurrence: US)
  Receive Date: 20210521
  Receipt Date: 20210521
  Transmission Date: 20210717
  Serious: No
  Sender: FDA-Public Use
  Company Number: US-ELI_LILLY_AND_COMPANY-US202105009281

PATIENT
  Sex: Female

DRUGS (4)
  1. EMGALITY [Suspect]
     Active Substance: GALCANEZUMAB-GNLM
     Indication: PRODUCT USED FOR UNKNOWN INDICATION
     Dosage: 120 MG, UNKNOWN
     Route: 065
  2. EXCEDRIN [ACETYLSALICYLIC ACID;CAFFEINE;PARAC [Concomitant]
     Indication: PRODUCT USED FOR UNKNOWN INDICATION
  3. RIZATRIPTAN. [Suspect]
     Active Substance: RIZATRIPTAN
     Dosage: 1 DOSAGE FORM, DAILY
     Route: 065
  4. RIZATRIPTAN. [Suspect]
     Active Substance: RIZATRIPTAN
     Indication: PRODUCT USED FOR UNKNOWN INDICATION
     Dosage: 1 DOSAGE FORM, 2/W
     Route: 065

REACTIONS (3)
  - Stress [Unknown]
  - Memory impairment [Not Recovered/Not Resolved]
  - Headache [Unknown]
